FAERS Safety Report 21390853 (Version 2)
Quarter: 2022Q3

REPORT INFORMATION
  Report Type: Spontaneous
  Country: US (occurrence: US)
  Receive Date: 20220929
  Receipt Date: 20220930
  Transmission Date: 20221027
  Serious: No
  Sender: FDA-Public Use
  Company Number: US-PFIZER INC-202201191464

PATIENT
  Age: 60 Year
  Sex: Male
  Weight: 99.79 kg

DRUGS (5)
  1. PAXLOVID [Suspect]
     Active Substance: NIRMATRELVIR\RITONAVIR
     Indication: COVID-19 treatment
     Dosage: [PF-07321332 300 MG]/[RITONAVIR 100 MG]; 2X/DAY
     Dates: start: 20220926
  2. TYLENOL [Concomitant]
     Active Substance: ACETAMINOPHEN
     Indication: Pyrexia
     Dosage: 500 MG
  3. TYLENOL [Concomitant]
     Active Substance: ACETAMINOPHEN
     Indication: Pain
  4. ADVIL [Concomitant]
     Active Substance: IBUPROFEN
     Indication: Pyrexia
     Dosage: 500 MG
  5. ADVIL [Concomitant]
     Active Substance: IBUPROFEN
     Indication: Pain

REACTIONS (7)
  - Intentional product misuse [Unknown]
  - Dysphagia [Unknown]
  - Dry mouth [Unknown]
  - Insomnia [Unknown]
  - Nausea [Recovering/Resolving]
  - Discomfort [Unknown]
  - Malaise [Unknown]

NARRATIVE: CASE EVENT DATE: 20220926
